FAERS Safety Report 20485913 (Version 1)
Quarter: 2022Q1

REPORT INFORMATION
  Report Type: Spontaneous
  Country: US (occurrence: US)
  Receive Date: 20220217
  Receipt Date: 20220217
  Transmission Date: 20220424
  Serious: Yes (Hospitalization)
  Sender: FDA-Public Use
  Company Number: US-PROCTER_AND_GAMBLE-GS22011794

PATIENT
  Age: 8 Year
  Sex: Male
  Weight: 31.7 kg

DRUGS (1)
  1. ALCOHOL [Suspect]
     Active Substance: ALCOHOL
     Dosage: UNKNOWN QUANTITY

REACTIONS (3)
  - Accidental exposure to product by child [Unknown]
  - Exposure via ingestion [Unknown]
  - Incorrect route of product administration [Unknown]
